FAERS Safety Report 10061545 (Version 1)
Quarter: 2014Q2

REPORT INFORMATION
  Report Type: Spontaneous
  Country: US (occurrence: US)
  Receive Date: 20140407
  Receipt Date: 20140407
  Transmission Date: 20141212
  Serious: Yes (Hospitalization, Other)
  Sender: FDA-Public Use
  Company Number: US-CELGENEUS-163-POMAL-14035492

PATIENT
  Age: 72 Year
  Sex: Female
  Weight: 71 kg

DRUGS (1)
  1. POMALYST [Suspect]
     Indication: PLASMA CELL MYELOMA
     Dosage: 1 MILLIGRAM
     Route: 048
     Dates: start: 201403

REACTIONS (2)
  - Mental status changes [Not Recovered/Not Resolved]
  - Dysphagia [Not Recovered/Not Resolved]
